FAERS Safety Report 9655937 (Version 1)
Quarter: 2013Q4

REPORT INFORMATION
  Report Type: Spontaneous
  Country: US (occurrence: US)
  Receive Date: 20131030
  Receipt Date: 20131030
  Transmission Date: 20140711
  Serious: No
  Sender: FDA-Public Use
  Company Number: US-B.I. PHARMACEUTICALS,INC./RIDGEFIELD-2013-BI-33562BP

PATIENT
  Age: 57 Year
  Sex: Male
  Weight: 93 kg

DRUGS (3)
  1. COMBIVENT [Suspect]
     Indication: BRONCHITIS
     Dosage: STRENGTH: 20 MCG / 100 MCG; DAILY DOSE: 80MCG/400MCG
     Route: 055
     Dates: start: 20131017
  2. BENADRYL [Concomitant]
     Indication: HYPERSENSITIVITY
     Dosage: 25 MG
     Route: 048
     Dates: start: 20131016
  3. BENADRYL [Concomitant]
     Indication: PRURITUS

REACTIONS (2)
  - Headache [Not Recovered/Not Resolved]
  - Off label use [Not Recovered/Not Resolved]
